FAERS Safety Report 15755409 (Version 2)
Quarter: 2020Q3

REPORT INFORMATION
  Report Type: Spontaneous
  Country: TR (occurrence: TR)
  Receive Date: 20181224
  Receipt Date: 20190104
  Transmission Date: 20201105
  Serious: Yes (Hospitalization)
  Sender: FDA-Public Use
  Company Number: PHHY2018TR188286

PATIENT
  Age: 44 Year
  Sex: Female

DRUGS (1)
  1. GILENYA [Suspect]
     Active Substance: FINGOLIMOD HYDROCHLORIDE
     Indication: MULTIPLE SCLEROSIS
     Dosage: UNK
     Route: 065
     Dates: start: 201611

REACTIONS (13)
  - Paraesthesia [Recovering/Resolving]
  - Hydrocephalus [Recovering/Resolving]
  - Lymphopenia [Recovering/Resolving]
  - Nuchal rigidity [Recovering/Resolving]
  - Headache [Recovering/Resolving]
  - Confusional state [Recovering/Resolving]
  - Leukocytosis [Recovering/Resolving]
  - Muscle spasms [Recovering/Resolving]
  - Quadriparesis [Unknown]
  - Encephalitis brain stem [Recovering/Resolving]
  - Pyrexia [Recovering/Resolving]
  - Sepsis [Unknown]
  - Listeriosis [Recovering/Resolving]

NARRATIVE: CASE EVENT DATE: 201807
